FAERS Safety Report 8551294-2 (Version None)
Quarter: 2012Q3

REPORT INFORMATION
  Report Type: 
  Country: None (occurrence: None)
  Receive Date: 20120730
  Receipt Date: 20111209
  Transmission Date: 20120928
  Serious: No
  Sender: FDA-Public Use
  Company Number: US-ALLERGAN-1116104US

PATIENT
  Age: 50 Year
  Sex: Female

DRUGS (1)
  1. LATISSE [Suspect]
     Indication: HYPOTRICHOSIS
     Dosage: UNK
     Route: 061

REACTIONS (3)
  - DRUG INEFFECTIVE [None]
  - INAPPROPRIATE SCHEDULE OF DRUG ADMINISTRATION [None]
  - MADAROSIS [None]
